FAERS Safety Report 20023254 (Version 3)
Quarter: 2022Q3

REPORT INFORMATION
  Report Type: Spontaneous
  Country: JP (occurrence: JP)
  Receive Date: 20211102
  Receipt Date: 20220714
  Transmission Date: 20221027
  Serious: No
  Sender: FDA-Public Use
  Company Number: JP-GSKNCCC-Case-01341007_AE-51161

PATIENT

DRUGS (3)
  1. ALBUTEROL [Suspect]
     Active Substance: ALBUTEROL
     Indication: Asthma
     Dosage: UNK MIXTURE OF VENTOLINE INHALER, INTAL INHALER AND SALINE
     Route: 055
  2. INTAL [Concomitant]
     Active Substance: CROMOLYN SODIUM
     Dosage: UNK
     Route: 055
  3. SODIUM CHLORIDE [Concomitant]
     Active Substance: SODIUM CHLORIDE
     Dosage: UNK
     Route: 055

REACTIONS (1)
  - Product dose omission issue [Unknown]
